FAERS Safety Report 8357909-6 (Version None)
Quarter: 2012Q2

REPORT INFORMATION
  Report Type: 
  Country: None (occurrence: None)
  Receive Date: 20120514
  Receipt Date: 20120510
  Transmission Date: 20120825
  Serious: Yes (Life-Threatening, Hospitalization)
  Sender: FDA-Public Use
  Company Number: FR-B.I. PHARMACEUTICALS,INC./RIDGEFIELD-2012-FF-00561FF

PATIENT
  Age: 76 Year
  Sex: Female
  Weight: 60 kg

DRUGS (7)
  1. CORDARONE [Concomitant]
     Dosage: HALF TABLET DAILY 5DAYS/7
  2. LEVOTHYROXINE SODIUM [Concomitant]
     Indication: HYPOTHYROIDISM
     Dosage: 25 MG
  3. CREON [Concomitant]
  4. AMLODIPINE BESYLATE AND OLMESARTAN MEDOXOMIL [Concomitant]
     Dosage: 5/40
  5. PRADAXA [Suspect]
     Indication: ATRIAL FIBRILLATION
     Dosage: 220 MG
     Route: 048
     Dates: start: 20120125, end: 20120430
  6. PANTOPRAZOLE SODIUM [Concomitant]
     Dosage: 20 MG
  7. EZETIMIBE [Concomitant]
     Dosage: 10/20

REACTIONS (2)
  - TROPONIN INCREASED [None]
  - ACUTE CORONARY SYNDROME [None]
